FAERS Safety Report 11324348 (Version 1)
Quarter: 2015Q3

REPORT INFORMATION
  Report Type: Spontaneous
  Country: BE (occurrence: BE)
  Receive Date: 20150730
  Receipt Date: 20150730
  Transmission Date: 20151125
  Serious: Yes (Hospitalization, Other)
  Sender: FDA-Public Use
  Company Number: BE-BRISTOL-MYERS SQUIBB COMPANY-BMS-2015-035635

PATIENT
  Sex: Female

DRUGS (1)
  1. SPRYCEL [Suspect]
     Active Substance: DASATINIB
     Indication: CHRONIC MYELOID LEUKAEMIA
     Dosage: 100 MG, UNK
     Route: 048
     Dates: start: 201304, end: 20150425

REACTIONS (8)
  - Thrombocytopenia [Unknown]
  - Skin infection [Unknown]
  - Pleurisy [Unknown]
  - Mastitis [Unknown]
  - Pleural effusion [Unknown]
  - Pancytopenia [Unknown]
  - Lymphangitis [Unknown]
  - Enteritis [Unknown]

NARRATIVE: CASE EVENT DATE: 2014
